FAERS Safety Report 19944174 (Version 1)
Quarter: 2021Q4

REPORT INFORMATION
  Report Type: Spontaneous
  Country: US (occurrence: US)
  Receive Date: 20211008
  Receipt Date: 20211008
  Transmission Date: 20220303
  Serious: Yes (Hospitalization)
  Sender: FDA-Public Use
  Company Number: None

PATIENT
  Age: 74 Year
  Sex: Male

DRUGS (2)
  1. HUMIRA [Suspect]
     Active Substance: ADALIMUMAB
     Indication: Product used for unknown indication
     Route: 058
     Dates: start: 20180124
  2. FLUOROURACIL [Concomitant]
     Active Substance: FLUOROURACIL

REACTIONS (2)
  - Fall [None]
  - Pelvic fracture [None]

NARRATIVE: CASE EVENT DATE: 20210803
